FAERS Safety Report 5332634-4 (Version None)
Quarter: 2007Q2

REPORT INFORMATION
  Report Type: 
  Country: None (occurrence: None)
  Receive Date: 20070523
  Receipt Date: 20070511
  Transmission Date: 20071010
  Serious: Yes (Other)
  Sender: FDA-Public Use
  Company Number: GB-PFIZER INC-2007034666

PATIENT
  Age: 55 Year
  Sex: Male

DRUGS (7)
  1. LYRICA [Suspect]
     Indication: NEUROPATHY PERIPHERAL
     Route: 048
     Dates: start: 20070301, end: 20070401
  2. ATENOLOL [Concomitant]
     Indication: BLOOD PRESSURE
     Route: 048
  3. TRANDOLAPRIL [Concomitant]
     Indication: BLOOD PRESSURE
     Route: 048
  4. AMLODIPINE [Concomitant]
     Indication: BLOOD PRESSURE
     Route: 048
  5. DARBEPOETIN ALFA [Concomitant]
     Indication: ANAEMIA
     Route: 048
  6. CALCIUM ACETATE [Concomitant]
     Route: 048
  7. SEVELAMER [Concomitant]
     Route: 048

REACTIONS (1)
  - BLOOD POTASSIUM INCREASED [None]
